FAERS Safety Report 7314232-6 (Version None)
Quarter: 2011Q1

REPORT INFORMATION
  Report Type: 
  Country: None (occurrence: None)
  Receive Date: 20110218
  Receipt Date: 20110218
  Transmission Date: 20110831
  Serious: Yes (Hospitalization)
  Sender: FDA-Public Use
  Company Number: None

PATIENT
  Age: 81 Year
  Sex: Male
  Weight: 87 kg

DRUGS (2)
  1. SIMVASTATIN [Suspect]
     Indication: HYPERLIPIDAEMIA
     Dosage: 40 MG EVERY DAY PO
     Route: 048
     Dates: start: 20060421, end: 20101027
  2. INFLUENZA [Suspect]
     Indication: IMMUNISATION
     Dosage: 0.5 ML ONCE IM
     Route: 030
     Dates: start: 20101015, end: 20101015

REACTIONS (5)
  - ABASIA [None]
  - FALL [None]
  - ASTHENIA [None]
  - FATIGUE [None]
  - TREMOR [None]
